FAERS Safety Report 23421824 (Version 1)
Quarter: 2024Q1

REPORT INFORMATION
  Report Type: Spontaneous
  Country: US (occurrence: US)
  Receive Date: 20240119
  Receipt Date: 20240119
  Transmission Date: 20240410
  Serious: No
  Sender: FDA-Public Use
  Company Number: US-PFIZER INC-202400013789

PATIENT
  Age: 52 Year
  Sex: Male
  Weight: 58.97 kg

DRUGS (1)
  1. PAXLOVID [Suspect]
     Active Substance: NIRMATRELVIR\RITONAVIR
     Indication: COVID-19 treatment
     Dosage: UNK, 2X/DAY
     Route: 048

REACTIONS (6)
  - Feeling hot [Unknown]
  - Headache [Unknown]
  - Night sweats [Unknown]
  - Cough [Unknown]
  - Insomnia [Unknown]
  - Dry throat [Unknown]
